FAERS Safety Report 11667977 (Version 1)
Quarter: 2015Q4

REPORT INFORMATION
  Report Type: Spontaneous
  Country: US (occurrence: US)
  Receive Date: 20151027
  Receipt Date: 20151027
  Transmission Date: 20160304
  Serious: No
  Sender: FDA-Public Use
  Company Number: US-ELI_LILLY_AND_COMPANY-US201003002021

PATIENT
  Sex: Female

DRUGS (3)
  1. FORTEO [Suspect]
     Active Substance: TERIPARATIDE
     Indication: OSTEOPOROSIS
     Dosage: 20 UG, DAILY (1/D)
     Route: 065
     Dates: start: 20090316
  2. ACIPHEX [Concomitant]
     Active Substance: RABEPRAZOLE SODIUM
  3. LUNESTA [Concomitant]
     Active Substance: ESZOPICLONE

REACTIONS (4)
  - Nausea [Unknown]
  - Pain in extremity [Unknown]
  - Fibromyalgia [Unknown]
  - Arthralgia [Unknown]
